FAERS Safety Report 5514464-3 (Version None)
Quarter: 2007Q4

REPORT INFORMATION
  Report Type: 
  Country: None (occurrence: None)
  Receive Date: 20071113
  Receipt Date: 20070626
  Transmission Date: 20080405
  Serious: No
  Sender: FDA-Public Use
  Company Number: A0653752A

PATIENT
  Age: 77 Year
  Sex: Male

DRUGS (3)
  1. COREG [Suspect]
     Indication: PROPHYLAXIS
     Dosage: 12.5MG TWICE PER DAY
     Route: 048
     Dates: start: 20070301, end: 20070528
  2. COREG CR [Suspect]
     Indication: PROPHYLAXIS
     Dosage: 40MG UNKNOWN
     Route: 048
  3. LISINOPRIL [Concomitant]

REACTIONS (2)
  - DIZZINESS [None]
  - DYSPNOEA [None]
